FAERS Safety Report 12752398 (Version 1)
Quarter: 2016Q3

REPORT INFORMATION
  Report Type: Spontaneous
  Country: US (occurrence: US)
  Receive Date: 20160916
  Receipt Date: 20160916
  Transmission Date: 20161109
  Serious: Yes (Other)
  Sender: FDA-Public Use
  Company Number: None

PATIENT
  Age: 22 Year
  Sex: Female
  Weight: 54 kg

DRUGS (10)
  1. LORATADINE. [Concomitant]
     Active Substance: LORATADINE
  2. EPIPEN [Concomitant]
     Active Substance: EPINEPHRINE
  3. MONTENUKLAST [Concomitant]
  4. FLINTSTONES GUMMY VITAMINS [Concomitant]
  5. RANITIDINE. [Concomitant]
     Active Substance: RANITIDINE
  6. METAMUCIL [Concomitant]
     Active Substance: PLANTAGO SEED
  7. PROAIR HFA [Concomitant]
     Active Substance: ALBUTEROL SULFATE
  8. HYOSCYAMINE SULFATE. [Suspect]
     Active Substance: HYOSCYAMINE SULFATE
     Indication: IRRITABLE BOWEL SYNDROME
     Route: 060
  9. ALIGN PROBIOTIC [Concomitant]
  10. ALLEGRA [Concomitant]
     Active Substance: FEXOFENADINE HYDROCHLORIDE

REACTIONS (14)
  - Body temperature decreased [None]
  - Product quality issue [None]
  - Abdominal pain upper [None]
  - Dyspepsia [None]
  - Dizziness [None]
  - Feeling cold [None]
  - Screaming [None]
  - Fear [None]
  - Hallucination, visual [None]
  - Fatigue [None]
  - Malaise [None]
  - Disorientation [None]
  - Confusional state [None]
  - Chest pain [None]

NARRATIVE: CASE EVENT DATE: 20160916
